FAERS Safety Report 13771629 (Version 1)
Quarter: 2017Q3

REPORT INFORMATION
  Report Type: Spontaneous
  Country: US (occurrence: US)
  Receive Date: 20170720
  Receipt Date: 20170720
  Transmission Date: 20171127
  Serious: No
  Sender: FDA-Public Use
  Company Number: US-PFIZER INC-2017314291

PATIENT
  Age: 55 Year
  Sex: Female

DRUGS (2)
  1. XELJANZ XR [Suspect]
     Active Substance: TOFACITINIB CITRATE
     Indication: RHEUMATOID ARTHRITIS
     Dosage: 11 MG, UNK
  2. METHOTREXATE SODIUM. [Suspect]
     Active Substance: METHOTREXATE SODIUM
     Dosage: 1 ML, WEEKLY
     Route: 030
     Dates: start: 20170308

REACTIONS (10)
  - Osteoarthritis [Unknown]
  - Bursitis [Unknown]
  - Arthralgia [Not Recovered/Not Resolved]
  - Pain in extremity [Unknown]
  - Hypoaesthesia [Unknown]
  - Myalgia [Unknown]
  - Back pain [Unknown]
  - Joint swelling [Not Recovered/Not Resolved]
  - Headache [Unknown]
  - Essential hypertension [Unknown]

NARRATIVE: CASE EVENT DATE: 20170308
